FAERS Safety Report 11363559 (Version 1)
Quarter: 2015Q3

REPORT INFORMATION
  Report Type: Report from Study
  Country: US (occurrence: US)
  Receive Date: 20150811
  Receipt Date: 20150811
  Transmission Date: 20151125
  Serious: No
  Sender: FDA-Public Use
  Company Number: US-009507513-1508USA003689

PATIENT
  Age: 18 Year
  Sex: Female
  Weight: 94.33 kg

DRUGS (1)
  1. IMPLANON [Suspect]
     Active Substance: ETONOGESTREL
     Dosage: UNK
     Dates: start: 20140117, end: 20150730

REACTIONS (2)
  - Menstruation irregular [Unknown]
  - Incorrect drug administration duration [Unknown]
